FAERS Safety Report 4686188-6 (Version None)
Quarter: 2005Q2

REPORT INFORMATION
  Report Type: 
  Country: None (occurrence: None)
  Receive Date: 20050607
  Receipt Date: 20050523
  Transmission Date: 20051028
  Serious: Yes (Hospitalization, Other)
  Sender: FDA-Public Use
  Company Number: 2005078565

PATIENT
  Age: 85 Year
  Sex: Female
  Weight: 139 kg

DRUGS (6)
  1. CELEBREX [Suspect]
     Indication: OSTEOARTHRITIS
     Dosage: 200 MG (20 MG, 1 ION 1 D), ORAL
     Route: 048
  2. CELEBREX [Suspect]
     Indication: OSTEOPOROSIS
     Dosage: 200 MG (20 MG, 1 ION 1 D), ORAL
     Route: 048
  3. SALSALATE (SALSALATE) [Suspect]
     Indication: OSTEOARTHRITIS
     Dosage: 1500 MG (750 MG , 2 IN 1 D)
  4. SALSALATE (SALSALATE) [Suspect]
     Indication: OSTEOPOROSIS
     Dosage: 1500 MG (750 MG , 2 IN 1 D)
  5. TIAZAC [Concomitant]
  6. COZAAR [Concomitant]

REACTIONS (9)
  - ARTHROPATHY [None]
  - COLON CANCER [None]
  - COLONIC OBSTRUCTION [None]
  - MELAENA [None]
  - PARKINSON'S DISEASE [None]
  - PERITONITIS [None]
  - POST PROCEDURAL COMPLICATION [None]
  - SPINAL DISORDER [None]
  - TREMOR [None]
